FAERS Safety Report 21608078 (Version 1)
Quarter: 2022Q4

REPORT INFORMATION
  Report Type: Report from Study
  Country: US (occurrence: US)
  Receive Date: 20221117
  Receipt Date: 20221117
  Transmission Date: 20230112
  Serious: No
  Sender: FDA-Public Use
  Company Number: US-ABBVIE-4170511

PATIENT
  Sex: Female

DRUGS (3)
  1. RINVOQ [Suspect]
     Active Substance: UPADACITINIB
     Indication: Rheumatoid arthritis
     Route: 048
     Dates: end: 2022
  2. Pfizer/BioNTech [Concomitant]
     Indication: COVID-19 immunisation
     Dosage: ONE IN ONCE?COVID VACCINE
     Route: 030
  3. Pfizer/BioNTech [Concomitant]
     Indication: COVID-19 immunisation
     Dosage: ONE IN ONCE?BOOSTER DOSE
     Route: 030

REACTIONS (5)
  - Fractured sacrum [Not Recovered/Not Resolved]
  - Inflammation [Unknown]
  - Respiratory tract infection [Not Recovered/Not Resolved]
  - Fall [Not Recovered/Not Resolved]
  - Fractured coccyx [Not Recovered/Not Resolved]
